FAERS Safety Report 14547387 (Version 1)
Quarter: 2018Q1

REPORT INFORMATION
  Report Type: Spontaneous
  Country: US (occurrence: US)
  Receive Date: 20180219
  Receipt Date: 20180219
  Transmission Date: 20180509
  Serious: No
  Sender: FDA-Public Use
  Company Number: US-PFIZER INC-2017535091

PATIENT
  Age: 49 Year
  Sex: Female
  Weight: 63.3 kg

DRUGS (2)
  1. LETROZOLE. [Concomitant]
     Active Substance: LETROZOLE
     Indication: OVARIAN CANCER METASTATIC
     Dosage: 2.5 MG, 1X/DAY
     Route: 048
     Dates: start: 20171117, end: 20180213
  2. IBRANCE [Suspect]
     Active Substance: PALBOCICLIB
     Indication: OVARIAN CANCER METASTATIC
     Dosage: 125 MG, CYCLIC (125 MG CAPSULE ONCE DAILY BY MOUTH FOR 21 DAYS ON AND THEN OFF FOR 7 DAYS)
     Route: 048
     Dates: start: 20171218, end: 20180213

REACTIONS (2)
  - Neoplasm progression [Not Recovered/Not Resolved]
  - Product use in unapproved indication [Unknown]

NARRATIVE: CASE EVENT DATE: 20180209
